FAERS Safety Report 5135064-3 (Version None)
Quarter: 2006Q4

REPORT INFORMATION
  Report Type: 
  Country: None (occurrence: None)
  Receive Date: 20060831
  Receipt Date: 20051229
  Transmission Date: 20070319
  Serious: Yes (Hospitalization)
  Sender: FDA-Public Use
  Company Number: 248885

PATIENT
  Age: 77 Year
  Sex: Female
  Weight: 86.6 kg

DRUGS (14)
  1. NOVOLIN R [Suspect]
     Indication: INSULIN-REQUIRING TYPE II DIABETES MELLITUS
     Dosage: QD, SUBCUTANEOUS
     Route: 058
     Dates: start: 20051101
  2. NOVOPEN 3 (INSULIN DELIVERY DEVICE) [Concomitant]
  3. AMARYL [Concomitant]
  4. LOPRESSOR [Concomitant]
  5. PREVACID [Concomitant]
  6. RESTORIL [Concomitant]
  7. ISOSORBIDE (ISOSORBIDE) [Concomitant]
  8. LEVOTHYROXINE SODIUM [Concomitant]
  9. LISINOPRIL [Concomitant]
  10. TORSEMIDE [Concomitant]
  11. DILTIAZEM HYDROCHLORIDE [Concomitant]
  12. PLAVIX [Concomitant]
  13. METFORMIN HCL [Concomitant]
  14. POTASSIUM (POTASSIUM) [Concomitant]

REACTIONS (1)
  - BLOOD GLUCOSE INCREASED [None]
